FAERS Safety Report 16079879 (Version 9)
Quarter: 2021Q2

REPORT INFORMATION
  Report Type: Spontaneous
  Country: CA (occurrence: CA)
  Receive Date: 20190315
  Receipt Date: 20210621
  Transmission Date: 20210716
  Serious: Yes (Other)
  Sender: FDA-Public Use
  Company Number: CA-SAMSUNG BIOEPIS-SB-2019-05870

PATIENT
  Age: 31 Year
  Sex: Female
  Weight: 71 kg

DRUGS (24)
  1. BOTULINUM TOXIN TYPE A [Suspect]
     Active Substance: BOTULINUM TOXIN TYPE A
     Indication: MIGRAINE
     Dosage: UNKNOWN
     Route: 030
  2. KEPPRA [Suspect]
     Active Substance: LEVETIRACETAM
     Indication: SEIZURE
     Dosage: UNKNOWN
     Route: 065
  3. LEVETIRACETAM. [Suspect]
     Active Substance: LEVETIRACETAM
     Indication: PRODUCT USED FOR UNKNOWN INDICATION
     Dosage: UNKNOWN
     Route: 065
  4. CLONAZEPAM. [Suspect]
     Active Substance: CLONAZEPAM
     Indication: PRODUCT USED FOR UNKNOWN INDICATION
     Dosage: UNKNOWN
     Route: 065
  5. BOTULINUM TOXIN TYPE A [Suspect]
     Active Substance: BOTULINUM TOXIN TYPE A
     Dosage: UNKNOWN
     Route: 030
  6. KEPPRA [Suspect]
     Active Substance: LEVETIRACETAM
     Dosage: UNKNOWN
     Route: 065
  7. CLONAZEPAM. [Suspect]
     Active Substance: CLONAZEPAM
     Dosage: UNKNOWN
     Route: 048
  8. QUETIAPINE FUMARATE. [Suspect]
     Active Substance: QUETIAPINE FUMARATE
     Dosage: UNKNOWN
     Route: 065
  9. REMICADE [Suspect]
     Active Substance: INFLIXIMAB
     Indication: CROHN^S DISEASE
     Dosage: POWDER FOR SOLUTION INTRAVENOUS
     Route: 042
  10. BENADRYL [Suspect]
     Active Substance: DIPHENHYDRAMINE HYDROCHLORIDE
     Indication: PREMEDICATION
     Dosage: UNKNOWN
     Route: 065
  11. APO?CLONAZEPAM [Suspect]
     Active Substance: CLONAZEPAM
     Indication: PRODUCT USED FOR UNKNOWN INDICATION
     Dosage: UNKNOWN
     Route: 065
  12. DIPHENHYDRAMINE HYDROCHLORIDE. [Suspect]
     Active Substance: DIPHENHYDRAMINE HYDROCHLORIDE
     Indication: PREMEDICATION
     Dosage: UNKNOWN
     Route: 065
  13. A?HYDROCORT [Suspect]
     Active Substance: HYDROCORTISONE SODIUM SUCCINATE
     Indication: PREMEDICATION
     Dosage: UNKNOWN POWDER FOR SOLUTION INTRAMUSCULAR
     Route: 065
  14. BOTOX COSMETIC [Suspect]
     Active Substance: ONABOTULINUMTOXINA
     Indication: MIGRAINE
     Dosage: POWDER FOR SOLUTION INTRAMUSCULAR
     Route: 030
  15. CORTENEMA [Suspect]
     Active Substance: HYDROCORTISONE
     Indication: PRODUCT USED FOR UNKNOWN INDICATION
     Dosage: SUSPENSION UNKNOWN
     Route: 065
  16. QUETIAPINE. [Suspect]
     Active Substance: QUETIAPINE
     Indication: SEIZURE
     Dosage: UNKNOWN
     Route: 065
  17. BOTULINUM TOXIN TYPE A [Suspect]
     Active Substance: BOTULINUM TOXIN TYPE A
     Dosage: UNKNOWN
     Route: 030
  18. QUETIAPINE FUMARATE. [Suspect]
     Active Substance: QUETIAPINE FUMARATE
     Indication: SEIZURE
     Dosage: UNKNOWN
     Route: 065
  19. REMICADE [Suspect]
     Active Substance: INFLIXIMAB
     Dosage: POWDER FOR SOLUTION INTRAVENOUS
     Route: 042
  20. INFLIXIMAB [Suspect]
     Active Substance: INFLIXIMAB
     Indication: PRODUCT USED FOR UNKNOWN INDICATION
     Dosage: UNKNOWN
     Route: 065
  21. DIPHENHYDRAMINE. [Suspect]
     Active Substance: DIPHENHYDRAMINE
     Indication: PREMEDICATION
     Dosage: UNKNOWN
     Route: 065
  22. HYDROCORTISONE. [Suspect]
     Active Substance: HYDROCORTISONE
     Indication: PREMEDICATION
     Dosage: UNKNOWN
     Route: 065
  23. REMICADE [Suspect]
     Active Substance: INFLIXIMAB
     Dosage: POWDER FOR SOLUTION INTRAVENOUS
     Route: 042
  24. APO?CLONAZEPAM [Suspect]
     Active Substance: CLONAZEPAM
     Dosage: UNKNOWN
     Route: 048

REACTIONS (5)
  - Off label use [Recovered/Resolved]
  - Product use in unapproved indication [Recovered/Resolved]
  - Influenza like illness [Recovered/Resolved]
  - Maternal exposure during pregnancy [Recovered/Resolved]
  - Intentional product use issue [Recovered/Resolved]
